FAERS Safety Report 9832948 (Version 3)
Quarter: 2014Q1

REPORT INFORMATION
  Report Type: Spontaneous
  Country: US (occurrence: US)
  Receive Date: 20140121
  Receipt Date: 20140326
  Transmission Date: 20141002
  Serious: Yes (Hospitalization, Other)
  Sender: FDA-Public Use
  Company Number: US-BRISTOL-MYERS SQUIBB COMPANY-20037651

PATIENT
  Age: 51 Year
  Sex: Male
  Weight: 100.68 kg

DRUGS (12)
  1. YERVOY [Suspect]
     Indication: MALIGNANT MELANOMA
     Dosage: 2 DOSES UNIT NOS;4DOSES/WEEK
     Route: 042
     Dates: start: 20131203, end: 20131226
  2. LISINOPRIL + HCTZ [Concomitant]
  3. SIMVASTATIN [Concomitant]
  4. ANDROGEL [Concomitant]
     Route: 062
     Dates: start: 20130912
  5. TYLENOL [Concomitant]
  6. ASPIRIN [Concomitant]
  7. BENADRYL [Concomitant]
  8. COLACE [Concomitant]
  9. VERSED [Concomitant]
  10. PREDNISONE [Concomitant]
  11. ZOCOR [Concomitant]
  12. TESTOSTERONE [Concomitant]
     Route: 002

REACTIONS (4)
  - Embolic stroke [Recovering/Resolving]
  - Meningitis viral [Recovered/Resolved]
  - Rash [Unknown]
  - Diarrhoea [Recovering/Resolving]
